FAERS Safety Report 24744235 (Version 1)
Quarter: 2024Q4

REPORT INFORMATION
  Report Type: Spontaneous
  Country: FR (occurrence: FR)
  Receive Date: 20241217
  Receipt Date: 20241217
  Transmission Date: 20250115
  Serious: Yes (Hospitalization)
  Sender: MYLAN
  Company Number: None

PATIENT
  Age: 70 Year
  Sex: Male
  Weight: 70 kg

DRUGS (4)
  1. DEXMEDETOMIDINE HYDROCHLORIDE [Suspect]
     Active Substance: DEXMEDETOMIDINE HYDROCHLORIDE
     Indication: Sedative therapy
     Dosage: UNK UNK, QH, 0.1 THEN 0.4 MICROG/KG/H
     Route: 042
     Dates: start: 20240926, end: 20240929
  2. MIDAZOLAM HYDROCHLORIDE [Suspect]
     Active Substance: MIDAZOLAM HYDROCHLORIDE
     Indication: Sedative therapy
     Dosage: UNK UNK, QH, 15 MG/H THEN 2.5 MG/H
     Route: 042
     Dates: start: 20240925, end: 20240926
  3. SUFENTANIL [Suspect]
     Active Substance: SUFENTANIL
     Indication: Sedative therapy
     Dosage: UNK UNK, QH, 5 MICROG/H THEN 2 MICROG/H
     Route: 042
     Dates: start: 20240925, end: 20240928
  4. RIVOTRIL [Suspect]
     Active Substance: CLONAZEPAM
     Indication: Sedative therapy
     Dosage: 1 MILLIGRAM
     Route: 042
     Dates: start: 20240925, end: 20240925

REACTIONS (2)
  - Hepatic cytolysis [Recovered/Resolved]
  - Cholestasis [Recovering/Resolving]

NARRATIVE: CASE EVENT DATE: 20240930
